FAERS Safety Report 24295132 (Version 2)
Quarter: 2024Q4

REPORT INFORMATION
  Report Type: Spontaneous
  Country: BR (occurrence: BR)
  Receive Date: 20240907
  Receipt Date: 20241011
  Transmission Date: 20250115
  Serious: Yes (Other)
  Sender: CELLTRION
  Company Number: BR-CELLTRION INC.-2023BR003527

PATIENT

DRUGS (7)
  1. INFLIXIMAB [Suspect]
     Active Substance: INFLIXIMAB
     Indication: Ankylosing spondylitis
     Dosage: 3 AND A HALF AMPOULES EVERY MONTH
     Route: 042
     Dates: start: 20221212
  2. INFLIXIMAB [Suspect]
     Active Substance: INFLIXIMAB
     Dosage: AFTER 15 DAYS ANOTHER 3 AND A HALF AMPOULES
     Route: 042
  3. INFLIXIMAB [Suspect]
     Active Substance: INFLIXIMAB
     Dosage: AFTER A MONTH SHE TOOK THE THIRD
     Route: 042
  4. INFLIXIMAB [Suspect]
     Active Substance: INFLIXIMAB
     Dosage: THE FOURTH INFUSION WAS THE LAST
     Route: 042
  5. PURAN [Concomitant]
     Active Substance: LEVOTHYROXINE SODIUM
     Indication: Hypothyroidism
     Dosage: 1 TABLET A DAY
     Route: 048
  6. HYDROCHLOROTHIAZIDE [Concomitant]
     Active Substance: HYDROCHLOROTHIAZIDE
     Indication: Hypertension
     Dosage: 1 TABLET A DAY
     Route: 048
  7. LOSARTAN [Concomitant]
     Active Substance: LOSARTAN
     Indication: Hypertension
     Dosage: 2 TABLETS A DAY
     Route: 048

REACTIONS (3)
  - Hepatic cirrhosis [Recovered/Resolved]
  - Hepatic function abnormal [Recovered/Resolved]
  - Intentional product use issue [Unknown]
